FAERS Safety Report 13168400 (Version 1)
Quarter: 2017Q1

REPORT INFORMATION
  Report Type: Spontaneous
  Country: JP (occurrence: JP)
  Receive Date: 20170131
  Receipt Date: 20170131
  Transmission Date: 20170428
  Serious: Yes (Death, Other)
  Sender: FDA-Public Use
  Company Number: JP-PFIZER INC-2017039410

PATIENT
  Age: 60 Year
  Sex: Male
  Weight: 60 kg

DRUGS (8)
  1. ELPLAT [Suspect]
     Active Substance: OXALIPLATIN
     Dosage: 130 MG, 1X/DAY
     Route: 041
     Dates: start: 20140408, end: 20140408
  2. LEVOFOLINATE [Suspect]
     Active Substance: LEVOLEUCOVORIN CALCIUM
     Dosage: 320 MG, 1X/DAY
     Route: 041
     Dates: start: 20140408, end: 20140408
  3. 5-FU /00098801/ [Concomitant]
     Active Substance: FLUOROURACIL
     Dosage: 4000 MG, UNK
     Dates: start: 20140318, end: 20140408
  4. CAMPTO [Suspect]
     Active Substance: IRINOTECAN
     Indication: PANCREATIC CARCINOMA
     Dosage: 250 MG, 1X/DAY
     Route: 041
     Dates: start: 20140318, end: 20140318
  5. LEVOFOLINATE [Suspect]
     Active Substance: LEVOLEUCOVORIN CALCIUM
     Indication: PANCREATIC CARCINOMA
     Dosage: 330 MG, 1X/DAY
     Route: 041
     Dates: start: 20140318, end: 20140318
  6. ELPLAT [Suspect]
     Active Substance: OXALIPLATIN
     Indication: PANCREATIC CARCINOMA
     Dosage: 142 MG, 1X/DAY
     Route: 041
     Dates: start: 20140318, end: 20140318
  7. 5-FU /00098801/ [Concomitant]
     Active Substance: FLUOROURACIL
     Dosage: 3800 MG, UNK
  8. CAMPTO [Suspect]
     Active Substance: IRINOTECAN
     Dosage: 240 MG, 1X/DAY
     Route: 041
     Dates: start: 20140408, end: 20140408

REACTIONS (8)
  - Pyrexia [Unknown]
  - White blood cell count decreased [Unknown]
  - Diarrhoea [Recovered/Resolved]
  - Haemoglobin decreased [Unknown]
  - Hyperglycaemia [Unknown]
  - Neoplasm progression [Fatal]
  - Neutrophil count decreased [Unknown]
  - Decreased appetite [Unknown]

NARRATIVE: CASE EVENT DATE: 20140331
